FAERS Safety Report 5534154-0 (Version None)
Quarter: 2007Q4

REPORT INFORMATION
  Report Type: 
  Country: None (occurrence: None)
  Receive Date: 20071130
  Receipt Date: 20071115
  Transmission Date: 20080405
  Serious: Yes (Hospitalization)
  Sender: FDA-Public Use
  Company Number: AZAUK200700392

PATIENT
  Age: 66 Year
  Sex: Male

DRUGS (12)
  1. VIDAZA [Suspect]
     Indication: MYELODYSPLASTIC SYNDROME
     Dosage: (156 MG, DAILY X 7 DAYS), SUBCUTANEOUS
     Route: 058
     Dates: start: 20070307, end: 20070313
  2. ATENOLOL [Concomitant]
  3. FOLIC ACID [Concomitant]
  4. PYRIDOXINE [Concomitant]
  5. BENDROFLUMETHIAZIDE [Concomitant]
  6. FLUOXETINE [Concomitant]
  7. TRAMADOL HCL [Concomitant]
  8. MESALAMINE [Concomitant]
  9. RANITIDINE HCL [Concomitant]
  10. ALLOPURINOL [Concomitant]
  11. METOCLOPRAMIDE [Concomitant]
  12. WARFARIN SODIUM [Concomitant]

REACTIONS (3)
  - BLOOD FIBRINOGEN INCREASED [None]
  - INTERNATIONAL NORMALISED RATIO DECREASED [None]
  - PULMONARY EMBOLISM [None]
